FAERS Safety Report 6723092-3 (Version None)
Quarter: 2010Q2

REPORT INFORMATION
  Report Type: 
  Country: None (occurrence: None)
  Receive Date: 20100513
  Receipt Date: 20100429
  Transmission Date: 20101027
  Serious: Yes (Hospitalization, Other)
  Sender: FDA-Public Use
  Company Number: IT-RANBAXY-2010RR-33519

PATIENT
  Age: 66 Year
  Sex: Female

DRUGS (6)
  1. VENLAFAXINE [Suspect]
     Dosage: 75 MG, UNK
     Route: 048
  2. CYMBALTA [Suspect]
     Dosage: 60 MG, UNK
     Route: 048
  3. TRAZODONE HCL [Suspect]
     Dosage: 75 MG, UNK
     Route: 048
  4. SERTRALINE HCL [Suspect]
     Dosage: 50 MG, UNK
     Route: 048
  5. CLONAZEPAM [Suspect]
     Dosage: 0.125 MG, UNK
     Route: 048
  6. GABAPENTIN [Concomitant]

REACTIONS (6)
  - DRUG INTERACTION [None]
  - HEART RATE DECREASED [None]
  - HYPOTENSION [None]
  - INTENTIONAL OVERDOSE [None]
  - MENTAL STATUS CHANGES [None]
  - SUICIDE ATTEMPT [None]
